FAERS Safety Report 7796654-2 (Version None)
Quarter: 2011Q4

REPORT INFORMATION
  Report Type: 
  Country: None (occurrence: None)
  Receive Date: 20111005
  Receipt Date: 20110923
  Transmission Date: 20120403
  Serious: Yes (Hospitalization, Other)
  Sender: FDA-Public Use
  Company Number: US-PAR PHARMACEUTICAL, INC-2011SCPR003214

PATIENT

DRUGS (1)
  1. PROPRANOLOL HYDROCHLORIDE [Suspect]
     Indication: MIGRAINE
     Dosage: 60 MG, DAILY
     Route: 065

REACTIONS (3)
  - PHAEOCHROMOCYTOMA [None]
  - LEFT VENTRICULAR FAILURE [None]
  - CONGESTIVE CARDIOMYOPATHY [None]
